FAERS Safety Report 4810124-2 (Version None)
Quarter: 2005Q4

REPORT INFORMATION
  Report Type: 
  Country: None (occurrence: None)
  Receive Date: 20051024
  Receipt Date: 20051013
  Transmission Date: 20060501
  Serious: Yes (Other)
  Sender: FDA-Public Use
  Company Number: 2005142879

PATIENT
  Sex: Male

DRUGS (6)
  1. PHENYTOIN SODIUM [Suspect]
     Indication: EPILEPSY
     Dosage: 300 MG(100 MG, 3 IN 1 D), ORAL
     Route: 048
     Dates: start: 20051001
  2. HIDANTAL (PHENYTOIN) [Concomitant]
  3. DIAZEPAM [Concomitant]
  4. CLONAZEPAM [Concomitant]
  5. PAROXETINE HCL [Concomitant]
  6. PROPRANOLOL [Concomitant]

REACTIONS (3)
  - EPILEPSY [None]
  - NIGHT SWEATS [None]
  - TREMOR [None]
